FAERS Safety Report 17825833 (Version 6)
Quarter: 2020Q4

REPORT INFORMATION
  Report Type: Report from Study
  Country: MX (occurrence: MX)
  Receive Date: 20200526
  Receipt Date: 20201030
  Transmission Date: 20210113
  Serious: Yes (Other)
  Sender: FDA-Public Use
  Company Number: MX-ROCHE-2607448

PATIENT
  Age: 45 Year
  Sex: Female
  Weight: 72 kg

DRUGS (2)
  1. ATEZOLIZUMAB. [Suspect]
     Active Substance: ATEZOLIZUMAB
     Indication: TRIPLE NEGATIVE BREAST CANCER
     Dosage: DATE OF MOST RECENT DOSE 840MG OF ATEZOLIZUMAB PRIOR TO EVENT ONSET: 12/MAY/2020
     Route: 041
     Dates: start: 20200428
  2. PACLITAXEL. [Suspect]
     Active Substance: PACLITAXEL
     Indication: TRIPLE NEGATIVE BREAST CANCER
     Dosage: DATE OF MOST RECENT DOSE 141.6 MG OF PACLITAXEL PRIOR TO EVENT ONSET: 12/MAY/2020
     Route: 042
     Dates: start: 20200428

REACTIONS (1)
  - Hypertriglyceridaemia [Recovering/Resolving]

NARRATIVE: CASE EVENT DATE: 20200519
